FAERS Safety Report 8935506 (Version 1)
Quarter: 2012Q4

REPORT INFORMATION
  Report Type: Spontaneous
  Country: US (occurrence: None)
  Receive Date: 20121128
  Receipt Date: 20121128
  Transmission Date: 20130627
  Serious: Yes (Other)
  Sender: FDA-Public Use
  Company Number: None

PATIENT
  Age: 69 Year
  Sex: Male
  Weight: 117.94 kg

DRUGS (1)
  1. LANTUS [Suspect]
     Indication: TYPE II DIABETES MELLITUS
     Dosage: 45 units  daily  sq
     Route: 058
     Dates: start: 20121115, end: 20121121

REACTIONS (2)
  - Product substitution issue [None]
  - Drug effect decreased [None]
